FAERS Safety Report 5016513-8 (Version None)
Quarter: 2006Q2

REPORT INFORMATION
  Report Type: 
  Country: None (occurrence: None)
  Receive Date: 20060602
  Receipt Date: 20060524
  Transmission Date: 20061013
  Serious: Yes (Life-Threatening)
  Sender: FDA-Public Use
  Company Number: DE-AVENTIS-200611554DE

PATIENT
  Age: 75 Year
  Sex: Male

DRUGS (1)
  1. LASIX [Suspect]
     Indication: BLOOD CREATININE INCREASED
     Route: 042
     Dates: start: 20050203

REACTIONS (1)
  - CIRCULATORY COLLAPSE [None]
